FAERS Safety Report 11633307 (Version 1)
Quarter: 2015Q4

REPORT INFORMATION
  Report Type: Spontaneous
  Country: GB (occurrence: GB)
  Receive Date: 20151015
  Receipt Date: 20151015
  Transmission Date: 20160304
  Serious: Yes (Hospitalization)
  Sender: FDA-Public Use
  Company Number: GB-BAXTER-2015BAX054938

PATIENT
  Age: 24 Day
  Sex: Male

DRUGS (1)
  1. SODIUM CHLORIDE INTRAVENOUS INFUSION BP 0.9% W/V [Suspect]
     Active Substance: SODIUM CHLORIDE
     Indication: NEONATAL HYPONATRAEMIA
     Dosage: PER HOUR
     Route: 042

REACTIONS (1)
  - Polyuria [Recovered/Resolved]
